FAERS Safety Report 14694327 (Version 2)
Quarter: 2018Q1

REPORT INFORMATION
  Report Type: Spontaneous
  Country: US (occurrence: US)
  Receive Date: 20180329
  Receipt Date: 20180330
  Transmission Date: 20180509
  Serious: Yes (Hospitalization, Other)
  Sender: FDA-Public Use
  Company Number: US-PFIZER INC-2018129513

PATIENT
  Age: 83 Year
  Sex: Female
  Weight: 34 kg

DRUGS (4)
  1. LYRICA [Suspect]
     Active Substance: PREGABALIN
     Indication: NEUROPATHY PERIPHERAL
     Dosage: 250 MG, 1X/DAY
     Route: 048
  2. LYRICA [Suspect]
     Active Substance: PREGABALIN
     Dosage: 50 MG, 2X/DAY
     Route: 048
  3. TRAMADOL. [Concomitant]
     Active Substance: TRAMADOL
  4. LYRICA [Suspect]
     Active Substance: PREGABALIN
     Indication: THROMBOSIS
     Dosage: 375 MG, 1X/DAY
     Route: 048

REACTIONS (5)
  - Feeling drunk [Unknown]
  - Feeling abnormal [Unknown]
  - Overdose [Unknown]
  - Pneumonia aspiration [Unknown]
  - Pneumonia [Unknown]

NARRATIVE: CASE EVENT DATE: 2016
